FAERS Safety Report 20887209 (Version 1)
Quarter: 2022Q2

REPORT INFORMATION
  Report Type: Report from Study
  Country: US (occurrence: US)
  Receive Date: 20220528
  Receipt Date: 20220528
  Transmission Date: 20220721
  Serious: Yes (Other)
  Sender: FDA-Public Use
  Company Number: US-CELGENE-USA-20210808803

PATIENT
  Age: 42 Year
  Sex: Male

DRUGS (1)
  1. ZEPOSIA [Suspect]
     Active Substance: OZANIMOD HYDROCHLORIDE
     Indication: Multiple sclerosis
     Dosage: .92 MILLIGRAM
     Route: 048
     Dates: start: 20210505, end: 20210820

REACTIONS (4)
  - Pyrexia [Recovering/Resolving]
  - Atypical pneumonia [Recovering/Resolving]
  - Immunodeficiency [Recovering/Resolving]
  - Bronchiolitis [Unknown]
